FAERS Safety Report 5427880-5 (Version None)
Quarter: 2007Q3

REPORT INFORMATION
  Report Type: 
  Country: None (occurrence: None)
  Receive Date: 20070828
  Receipt Date: 20070817
  Transmission Date: 20080115
  Serious: Yes (Other)
  Sender: FDA-Public Use
  Company Number: US-PFIZER INC-2005011658

PATIENT
  Sex: Male
  Weight: 86.2 kg

DRUGS (5)
  1. VIAGRA [Suspect]
     Indication: ERECTILE DYSFUNCTION
     Route: 048
  2. ZYPREXA [Concomitant]
  3. ALL OTHER THERAPEUTIC PRODUCTS [Concomitant]
  4. ATENOLOL [Concomitant]
  5. RISPERIDONE [Concomitant]

REACTIONS (4)
  - DRUG INEFFECTIVE [None]
  - EJACULATION FAILURE [None]
  - ERECTION INCREASED [None]
  - GENITAL INJURY [None]
